FAERS Safety Report 7081858-7 (Version None)
Quarter: 2010Q4

REPORT INFORMATION
  Report Type: 
  Country: None (occurrence: None)
  Receive Date: 20101103
  Receipt Date: 20101019
  Transmission Date: 20110411
  Serious: Yes (Hospitalization, Other)
  Sender: FDA-Public Use
  Company Number: US-AMGEN-QUU432744

PATIENT

DRUGS (1)
  1. ENBREL [Suspect]
     Dosage: 50 MG, QWK
     Route: 064
     Dates: start: 20081205, end: 20091119

REACTIONS (13)
  - CARDIOVASCULAR DISORDER [None]
  - CEREBRAL INFARCTION [None]
  - FOETAL GROWTH RESTRICTION [None]
  - HYDRONEPHROSIS [None]
  - HYPERSENSITIVITY [None]
  - MITRAL VALVE INCOMPETENCE [None]
  - PREMATURE BABY [None]
  - RASH GENERALISED [None]
  - RENAL APLASIA [None]
  - TRICUSPID VALVE INCOMPETENCE [None]
  - ULTRASOUND DOPPLER ABNORMAL [None]
  - VENTRICULAR HYPERTROPHY [None]
  - VESICOURETERIC REFLUX [None]
